FAERS Safety Report 12266166 (Version 1)
Quarter: 2016Q2

REPORT INFORMATION
  Report Type: Spontaneous
  Country: US (occurrence: None)
  Receive Date: 20160413
  Receipt Date: 20160413
  Transmission Date: 20160815
  Serious: Yes (Death, Hospitalization)
  Sender: FDA-Public Use
  Company Number: None

PATIENT
  Age: 60 Year
  Sex: Female
  Weight: 65.77 kg

DRUGS (7)
  1. GLUCOSAMINE [Concomitant]
     Active Substance: GLUCOSAMINE
  2. VITAMIN D [Concomitant]
     Active Substance: CHOLECALCIFEROL
  3. DAILY MULTI-VITAMINS [Concomitant]
  4. ECHENACIA [Concomitant]
  5. ALENDRONATE SODIUM TABLETS USP, 70 MG (SUBSTITUTE FOR FOSAMAX) DRUG RECALLED FEBRUARY 11, 2016 (UNKNOWN IMPURITY) [Suspect]
     Active Substance: ALENDRONATE SODIUM
     Indication: OSTEOPOROSIS PROPHYLAXIS
     Dosage: 70MG 1 PILL ONCE A WEEK MOUTH
     Route: 048
     Dates: start: 20150624, end: 20151130
  6. FISH OIL [Concomitant]
     Active Substance: FISH OIL
  7. THYROID MEDICATION [Concomitant]
     Active Substance: UNSPECIFIED INGREDIENT

REACTIONS (1)
  - Toxic shock syndrome streptococcal [None]
